FAERS Safety Report 8964314 (Version 1)
Quarter: 2012Q4

REPORT INFORMATION
  Report Type: 
  Country: US (occurrence: US)
  Receive Date: 20121214
  Receipt Date: 20121214
  Transmission Date: 20130627
  Serious: No
  Sender: FDA-Public Use
  Company Number: US-GLAXOSMITHKLINE-A0966399A

PATIENT
  Age: 33 Year
  Sex: Female

DRUGS (10)
  1. AVODART [Suspect]
     Indication: WEIGHT DECREASED
     Dosage: 1CAP Weekly
     Route: 048
     Dates: start: 20120127
  2. METFORMIN [Concomitant]
  3. VALIUM [Concomitant]
  4. PRAVACHOL [Concomitant]
  5. LORATAB [Concomitant]
  6. CARVEDILOL [Concomitant]
  7. AMITRIPTYLINE [Concomitant]
  8. FLEXERIL [Concomitant]
  9. PLETAL [Concomitant]
  10. BOTOX [Concomitant]

REACTIONS (4)
  - Menorrhagia [Unknown]
  - Vaginal discharge [Unknown]
  - Dysmenorrhoea [Unknown]
  - Off label use [Unknown]
